FAERS Safety Report 9460141 (Version 1)
Quarter: 2013Q3

REPORT INFORMATION
  Report Type: Spontaneous
  Country: US (occurrence: None)
  Receive Date: 20130814
  Receipt Date: 20130814
  Transmission Date: 20140515
  Serious: Yes (Hospitalization)
  Sender: FDA-Public Use
  Company Number: None

PATIENT
  Age: 54 Year
  Sex: Male

DRUGS (1)
  1. ENBREL 50MG IMMUNEX CORP [Suspect]
     Indication: PSORIASIS
     Dates: start: 20100606

REACTIONS (1)
  - Cellulitis [None]
